FAERS Safety Report 16201782 (Version 1)
Quarter: 2019Q2

REPORT INFORMATION
  Report Type: Spontaneous
  Country: US (occurrence: US)
  Receive Date: 20190415
  Receipt Date: 20190415
  Transmission Date: 20190711
  Serious: Yes (Hospitalization)
  Sender: FDA-Public Use
  Company Number: None

PATIENT
  Age: 34 Year
  Sex: Female
  Weight: 87.75 kg

DRUGS (1)
  1. AIMOVIG [Suspect]
     Active Substance: ERENUMAB-AOOE
     Indication: MIGRAINE
     Dates: start: 20190410

REACTIONS (6)
  - Dizziness [None]
  - Nausea [None]
  - Dyspnoea [None]
  - Vertigo [None]
  - Urticaria [None]
  - Swelling [None]

NARRATIVE: CASE EVENT DATE: 20190414
